FAERS Safety Report 6786800-1 (Version None)
Quarter: 2010Q2

REPORT INFORMATION
  Report Type: 
  Country: None (occurrence: None)
  Receive Date: 20100623
  Receipt Date: 20100617
  Transmission Date: 20101027
  Serious: Yes (Hospitalization, Other)
  Sender: FDA-Public Use
  Company Number: JP-BAYER-200913999BYL

PATIENT
  Age: 77 Year
  Sex: Female

DRUGS (1)
  1. NEXAVAR [Suspect]
     Indication: RENAL CELL CARCINOMA
     Dosage: UNIT DOSE: 200 MG
     Route: 048
     Dates: start: 20091008, end: 20091019

REACTIONS (5)
  - HAEMOGLOBIN DECREASED [None]
  - LIVER DISORDER [None]
  - PLATELET COUNT DECREASED [None]
  - TOXIC EPIDERMAL NECROLYSIS [None]
  - WHITE BLOOD CELL COUNT DECREASED [None]
